FAERS Safety Report 23585016 (Version 2)
Quarter: 2024Q4

REPORT INFORMATION
  Report Type: Spontaneous
  Country: AR (occurrence: AR)
  Receive Date: 20240301
  Receipt Date: 20241119
  Transmission Date: 20250115
  Serious: Yes (Hospitalization)
  Sender: GLAXOSMITHKLINE
  Company Number: AR-GLAXOSMITHKLINE-AR2024AMR026139

PATIENT

DRUGS (1)
  1. NUCALA [Suspect]
     Active Substance: MEPOLIZUMAB
     Indication: Asthma
     Dosage: 100 MG, MO EVERY 28 DAYS
     Dates: start: 20200424

REACTIONS (3)
  - Blood volume expansion [Unknown]
  - Anaemia [Unknown]
  - Osteoarthritis [Not Recovered/Not Resolved]
